FAERS Safety Report 8659214 (Version 2)
Quarter: 2012Q4

REPORT INFORMATION
  Report Type: 
  Country: CA (occurrence: CA)
  Receive Date: 20120711
  Receipt Date: 20121111
  Transmission Date: 20130627
  Serious: Yes (Hospitalization, Other)
  Sender: FDA-Public Use
  Company Number: PHHY2012CA058456

PATIENT
  Sex: Male

DRUGS (10)
  1. ACLASTA [Suspect]
     Indication: OSTEOPOROSIS
     Dosage: 5 mg/100 ml, UNK
     Route: 042
     Dates: start: 20110613
  2. ACLASTA [Suspect]
     Dosage: 5 mg/ 100 ml, UNK
     Route: 042
     Dates: start: 20120614
  3. RAMIPRIL [Concomitant]
     Dosage: 10 mg, QD
  4. NIFEDIPINE - SLOW RELEASE [Concomitant]
     Dosage: UNK UKN, UNK
  5. VITALUX [Concomitant]
     Dosage: UNK UKN, UNK
  6. ADALAT XL [Concomitant]
     Dosage: 60 mg, QD
  7. CRESTOR [Concomitant]
     Dosage: 20 mg, QD
  8. CALCIUM [Concomitant]
     Dosage: UNK UKN, UNK
  9. VITAMIN D [Concomitant]
     Dosage: UNK UKN, UNK
  10. PARIET [Concomitant]
     Dosage: 20 mg, QD

REACTIONS (15)
  - Renal failure acute [Unknown]
  - Nephropathy [Unknown]
  - Urine output decreased [Unknown]
  - Nocturia [Unknown]
  - Dehydration [Unknown]
  - Gastric mucosal lesion [Unknown]
  - Gastric polyps [Unknown]
  - Cardiac murmur [Unknown]
  - Vascular calcification [Unknown]
  - Cachexia [Unknown]
  - Blood pressure decreased [Unknown]
  - Nausea [Unknown]
  - Vomiting [Unknown]
  - Pruritus [Unknown]
  - Fatigue [Unknown]
